FAERS Safety Report 7231508-1 (Version None)
Quarter: 2011Q1

REPORT INFORMATION
  Report Type: 
  Country: None (occurrence: None)
  Receive Date: 20110118
  Receipt Date: 20110113
  Transmission Date: 20110831
  Serious: Yes (Other)
  Sender: FDA-Public Use
  Company Number: BR-ABBOTT-10P-020-0635209-00

PATIENT
  Sex: Female
  Weight: 68 kg

DRUGS (6)
  1. PREDNISONE 6MG/MELOXICAM 7.5MG/RANITIDINE 200MG [Concomitant]
     Indication: RHEUMATOID ARTHRITIS
     Route: 048
     Dates: start: 20060101
  2. HYDROCHLOROTHIAZIDE [Concomitant]
     Indication: DIURETIC THERAPY
     Route: 048
  3. AAS [Concomitant]
     Indication: CARDIAC DISORDER
     Route: 048
     Dates: start: 20100201
  4. TECNOMET [Concomitant]
     Indication: RHEUMATOID ARTHRITIS
     Route: 048
     Dates: start: 20080101
  5. CALCIUM +VIT D [Concomitant]
     Indication: RHEUMATOID ARTHRITIS
     Route: 048
  6. HUMIRA [Suspect]
     Indication: RHEUMATOID ARTHRITIS
     Route: 058

REACTIONS (11)
  - WEIGHT INCREASED [None]
  - INFLUENZA [None]
  - TACHYCARDIA [None]
  - ACUTE SINUSITIS [None]
  - DYSPHONIA [None]
  - EXTRASYSTOLES [None]
  - SYNCOPE [None]
  - FATIGUE [None]
  - INJECTION SITE PAIN [None]
  - HYPERTENSION [None]
  - DIZZINESS [None]
